FAERS Safety Report 26130419 (Version 1)
Quarter: 2025Q4

REPORT INFORMATION
  Report Type: Spontaneous
  Country: US (occurrence: None)
  Receive Date: 20251205
  Receipt Date: 20251205
  Transmission Date: 20260118
  Serious: Yes (unspecified)
  Sender: FDA-CTU
  Company Number: None

PATIENT
  Age: 71 Year
  Sex: Female
  Weight: 63 kg

DRUGS (6)
  1. PROLIA [Suspect]
     Active Substance: DENOSUMAB
     Indication: Osteoporosis
     Dates: start: 20251111
  2. hydrochlorothiazide 12 mg [Concomitant]
  3. ROSUVASTATIN [Concomitant]
     Active Substance: ROSUVASTATIN
  4. ELIQUIS [Concomitant]
     Active Substance: APIXABAN
  5. DILTIAZEM [Concomitant]
     Active Substance: DILTIAZEM
  6. TYLENOL [Concomitant]
     Active Substance: ACETAMINOPHEN

REACTIONS (4)
  - Chills [None]
  - Pain [None]
  - Atrial fibrillation [None]
  - Stress [None]

NARRATIVE: CASE EVENT DATE: 20251119
